FAERS Safety Report 8971753 (Version 1)
Quarter: 2012Q4

REPORT INFORMATION
  Report Type: 
  Country: US (occurrence: US)
  Receive Date: 20121217
  Receipt Date: 20121217
  Transmission Date: 20130627
  Serious: Yes (Other)
  Sender: FDA-Public Use
  Company Number: US-ABBOTT-12P-163-1019248-00

PATIENT
  Sex: Male
  Weight: 72.64 kg

DRUGS (24)
  1. SYNTHROID [Suspect]
     Indication: THYROIDECTOMY
     Dates: start: 201103
  2. ASTELIN [Concomitant]
     Indication: PRODUCT USED FOR UNKNOWN INDICATION
  3. CARVEDILOL [Concomitant]
     Indication: PRODUCT USED FOR UNKNOWN INDICATION
  4. CITALOPRAM [Concomitant]
     Indication: PRODUCT USED FOR UNKNOWN INDICATION
  5. FINASTERIDE [Concomitant]
     Indication: PRODUCT USED FOR UNKNOWN INDICATION
  6. FUROSEMIDE [Concomitant]
     Indication: CARDIAC FAILURE CONGESTIVE
  7. POTASSIUM [Concomitant]
     Indication: PRODUCT USED FOR UNKNOWN INDICATION
  8. LOSARTAN [Concomitant]
     Indication: PRODUCT USED FOR UNKNOWN INDICATION
  9. SINGULAIR [Concomitant]
     Indication: PRODUCT USED FOR UNKNOWN INDICATION
  10. SIMVASTATIN [Concomitant]
     Indication: PRODUCT USED FOR UNKNOWN INDICATION
  11. Q NASAL SPRAY [Concomitant]
     Indication: PRODUCT USED FOR UNKNOWN INDICATION
  12. Q NASAL SPRAY [Concomitant]
     Indication: HYPERSENSITIVITY
  13. COUMADIN [Concomitant]
     Indication: PRODUCT USED FOR UNKNOWN INDICATION
  14. ASA [Concomitant]
     Indication: PRODUCT USED FOR UNKNOWN INDICATION
  15. PRO-AIR [Concomitant]
     Indication: ASTHMA
  16. SPIRIVA [Concomitant]
     Indication: PRODUCT USED FOR UNKNOWN INDICATION
  17. BROVANA [Concomitant]
     Indication: PRODUCT USED FOR UNKNOWN INDICATION
  18. PULMICORT [Concomitant]
     Indication: PRODUCT USED FOR UNKNOWN INDICATION
  19. COQ10 [Concomitant]
     Indication: PRODUCT USED FOR UNKNOWN INDICATION
  20. FISH OIL [Concomitant]
     Indication: PRODUCT USED FOR UNKNOWN INDICATION
  21. GLUCOSAMINE + CHONDROITIN [Concomitant]
     Indication: PRODUCT USED FOR UNKNOWN INDICATION
  22. MVI [Concomitant]
     Indication: PRODUCT USED FOR UNKNOWN INDICATION
  23. CALCIUM [Concomitant]
     Indication: PRODUCT USED FOR UNKNOWN INDICATION
  24. TAMSULOSIN [Concomitant]
     Indication: PRODUCT USED FOR UNKNOWN INDICATION

REACTIONS (4)
  - Ejection fraction decreased [Recovering/Resolving]
  - Atrial fibrillation [Recovering/Resolving]
  - Coeliac disease [Not Recovered/Not Resolved]
  - Weight decreased [Not Recovered/Not Resolved]
